FAERS Safety Report 4873653-1 (Version None)
Quarter: 2006Q1

REPORT INFORMATION
  Report Type: 
  Country: None (occurrence: None)
  Receive Date: 20060103
  Receipt Date: 20060103
  Transmission Date: 20060701
  Serious: Yes (Death)
  Sender: FDA-Public Use
  Company Number: None

PATIENT
  Age: 66 Year
  Sex: Female

DRUGS (3)
  1. GEMZAR 750 MG/M2 E LILLY [Suspect]
     Indication: PANCREATIC CARCINOMA METASTATIC
     Dosage: 1000 MG  WEEKLY IV
     Route: 042
     Dates: start: 20040509, end: 20050916
  2. TAXOTERE [Suspect]
     Indication: PANCREATIC CARCINOMA METASTATIC
     Dosage: 40 MG WEEKLY IV
     Route: 042
     Dates: start: 20040509, end: 20050916
  3. XELODA [Suspect]
     Indication: PANCREATIC CARCINOMA METASTATIC
     Dosage: 500 MG TABS
     Dates: start: 20040509, end: 20050916

REACTIONS (1)
  - DEATH [None]
